FAERS Safety Report 10723182 (Version 3)
Quarter: 2016Q4

REPORT INFORMATION
  Report Type: Spontaneous
  Country: US (occurrence: US)
  Receive Date: 20150120
  Receipt Date: 20161219
  Transmission Date: 20170206
  Serious: Yes (Other)
  Sender: FDA-Public Use
  Company Number: US-PFIZER INC-2015019801

PATIENT
  Sex: Female

DRUGS (1)
  1. AROMASIN [Suspect]
     Active Substance: EXEMESTANE
     Dosage: 25 MG, DAILY (TAKING IN THE MORNING BEFORE SHE EATS)

REACTIONS (8)
  - Malaise [Unknown]
  - Pain in extremity [Unknown]
  - Inappropriate schedule of drug administration [Unknown]
  - Intervertebral disc protrusion [Unknown]
  - Breast mass [Unknown]
  - Headache [Unknown]
  - Nausea [Unknown]
  - Bone pain [Unknown]

NARRATIVE: CASE EVENT DATE: 20160923
